FAERS Safety Report 11623640 (Version 1)
Quarter: 2015Q4

REPORT INFORMATION
  Report Type: Spontaneous
  Country: US (occurrence: US)
  Receive Date: 20151013
  Receipt Date: 20151013
  Transmission Date: 20160304
  Serious: No
  Sender: FDA-Public Use
  Company Number: US-JNJFOC-20150221433

PATIENT
  Age: 78 Year
  Sex: Female
  Weight: 73.48 kg

DRUGS (3)
  1. TYLENOL REGULAR STRENGTH [Suspect]
     Active Substance: ACETAMINOPHEN
     Indication: ARTHRALGIA
     Route: 048
     Dates: start: 20150221, end: 20150221
  2. XARELTO [Concomitant]
     Active Substance: RIVAROXABAN
     Indication: ARTHRALGIA
     Route: 065
  3. TYLENOL REGULAR STRENGTH [Suspect]
     Active Substance: ACETAMINOPHEN
     Route: 048

REACTIONS (2)
  - Drug ineffective [Unknown]
  - Joint stiffness [Unknown]

NARRATIVE: CASE EVENT DATE: 20150221
